FAERS Safety Report 19355435 (Version 1)
Quarter: 2021Q2

REPORT INFORMATION
  Report Type: Spontaneous
  Country: US (occurrence: US)
  Receive Date: 20210602
  Receipt Date: 20210602
  Transmission Date: 20210717
  Serious: Yes (Hospitalization, Other)
  Sender: FDA-Public Use
  Company Number: US-JNJFOC-20210601774

PATIENT
  Age: 75 Year
  Sex: Male
  Weight: 96.2 kg

DRUGS (2)
  1. XARELTO [Suspect]
     Active Substance: RIVAROXABAN
     Indication: ATRIAL FIBRILLATION
     Dosage: 20 MG, QD
     Route: 048
     Dates: start: 20170217
  2. ASPIR LOW [Suspect]
     Active Substance: ASPIRIN
     Indication: CORONARY ARTERY DISEASE
     Dosage: 81 MG, QD
     Dates: start: 20120724

REACTIONS (9)
  - Rectal haemorrhage [Unknown]
  - Dizziness [Unknown]
  - Gastrointestinal haemorrhage [Recovered/Resolved]
  - Dyspnoea [Unknown]
  - Diverticulitis intestinal haemorrhagic [Unknown]
  - Gastrointestinal haemorrhage [Recovered/Resolved]
  - Haematochezia [Unknown]
  - Abdominal pain [Unknown]
  - Melaena [Recovered/Resolved]

NARRATIVE: CASE EVENT DATE: 20210414
